FAERS Safety Report 7003312-0 (Version None)
Quarter: 2010Q3

REPORT INFORMATION
  Report Type: 
  Country: None (occurrence: None)
  Receive Date: 20100920
  Receipt Date: 20100601
  Transmission Date: 20110219
  Serious: No
  Sender: FDA-Public Use
  Company Number: A0862248A

PATIENT
  Sex: Male

DRUGS (5)
  1. LAMICTAL [Suspect]
     Indication: EPILEPSY
     Dosage: 400MG PER DAY
     Route: 048
     Dates: start: 20090101
  2. KEPPRA [Concomitant]
  3. MULTI-VITAMIN [Concomitant]
  4. VIMPAT [Concomitant]
  5. IBUPROFEN [Concomitant]

REACTIONS (3)
  - DIZZINESS [None]
  - DRUG LEVEL DECREASED [None]
  - HEADACHE [None]
